FAERS Safety Report 7037627-7 (Version None)
Quarter: 2010Q4

REPORT INFORMATION
  Report Type: 
  Country: None (occurrence: None)
  Receive Date: 20101011
  Receipt Date: 20101005
  Transmission Date: 20110411
  Serious: Yes (Life-Threatening, Other)
  Sender: FDA-Public Use
  Company Number: PHHY2010CA56812

PATIENT
  Sex: Male

DRUGS (3)
  1. RITALIN [Suspect]
     Indication: ATTENTION DEFICIT/HYPERACTIVITY DISORDER
     Dosage: UNK
     Route: 048
     Dates: start: 19820101
  2. PRISTIQ [Concomitant]
  3. OMEGA 3, 6, 9 [Concomitant]

REACTIONS (28)
  - ABNORMAL BEHAVIOUR [None]
  - AGGRESSION [None]
  - ANXIETY [None]
  - APPARENT DEATH [None]
  - BRAIN INJURY [None]
  - CARDIAC MURMUR [None]
  - CONVULSION [None]
  - DAYDREAMING [None]
  - DEPRESSION [None]
  - DISTURBANCE IN ATTENTION [None]
  - DRUG HYPERSENSITIVITY [None]
  - ECHOLALIA [None]
  - FOAMING AT MOUTH [None]
  - FRUSTRATION [None]
  - GRIMACING [None]
  - INTENTIONAL SELF-INJURY [None]
  - LEARNING DISABILITY [None]
  - OBSESSIVE-COMPULSIVE DISORDER [None]
  - PSYCHOMOTOR HYPERACTIVITY [None]
  - REPETITIVE SPEECH [None]
  - SCHIZOID PERSONALITY DISORDER [None]
  - SOMNAMBULISM [None]
  - SUICIDAL IDEATION [None]
  - TIC [None]
  - TINNITUS [None]
  - TOURETTE'S DISORDER [None]
  - URINARY INCONTINENCE [None]
  - VISUAL IMPAIRMENT [None]
